FAERS Safety Report 9461261 (Version 2)
Quarter: 2013Q4

REPORT INFORMATION
  Report Type: Spontaneous
  Country: US (occurrence: US)
  Receive Date: 20130816
  Receipt Date: 20131001
  Transmission Date: 20140711
  Serious: No
  Sender: FDA-Public Use
  Company Number: US-PFIZER INC-2013236230

PATIENT
  Age: 66 Year
  Sex: Female
  Weight: 53.52 kg

DRUGS (4)
  1. ADVIL PM [Suspect]
     Indication: SOMNOLENCE
     Dosage: 2 LIQUI-GELS, ONCE A DAY
     Route: 048
     Dates: start: 20130811, end: 20130811
  2. OMEPRAZOLE [Concomitant]
     Indication: DYSPEPSIA
     Dosage: UNK
  3. BENICAR [Concomitant]
     Dosage: UNK
  4. SIMVASTATIN [Concomitant]
     Dosage: UNK

REACTIONS (1)
  - Drug ineffective [Unknown]
